FAERS Safety Report 9296385 (Version 2)
Quarter: 2013Q3

REPORT INFORMATION
  Report Type: Report from Study
  Country: US (occurrence: US)
  Receive Date: 20130517
  Receipt Date: 20130823
  Transmission Date: 20140515
  Serious: Yes (Other)
  Sender: FDA-Public Use
  Company Number: US-US-EMD SERONO, INC.-7211202

PATIENT
  Age: 31 Year
  Sex: Female

DRUGS (3)
  1. REBIF [Suspect]
     Indication: MULTIPLE SCLEROSIS
     Route: 058
     Dates: start: 20130128
  2. PROZAC [Concomitant]
     Indication: DEPRESSION
  3. HYDROCODONE [Concomitant]
     Indication: PAIN

REACTIONS (2)
  - Convulsion [Recovering/Resolving]
  - Injection site erythema [Unknown]
